FAERS Safety Report 5227112-7 (Version None)
Quarter: 2007Q1

REPORT INFORMATION
  Report Type: 
  Country: None (occurrence: None)
  Receive Date: 20070130
  Receipt Date: 20070115
  Transmission Date: 20070707
  Serious: Yes (Hospitalization)
  Sender: FDA-Public Use
  Company Number: 07-000101

PATIENT
  Age: 60 Year
  Sex: Female

DRUGS (2)
  1. PHENAZOPYRIDINE HCL TAB [Suspect]
     Dosage: 100 MG, QID,
  2. SULFISOXAZOLE [Suspect]
     Dosage: 500 MG, QID,

REACTIONS (14)
  - ALANINE AMINOTRANSFERASE INCREASED [None]
  - ANOREXIA [None]
  - ARTHRALGIA [None]
  - ASPARTATE AMINOTRANSFERASE INCREASED [None]
  - BLOOD ALKALINE PHOSPHATASE ABNORMAL [None]
  - BLOOD BILIRUBIN INCREASED [None]
  - BROMOSULPHTHALEIN TEST ABNORMAL [None]
  - DRY MOUTH [None]
  - FLUSHING [None]
  - HEADACHE [None]
  - MALAISE [None]
  - OEDEMA PERIPHERAL [None]
  - OVERDOSE [None]
  - PYREXIA [None]
